FAERS Safety Report 8266419-6 (Version None)
Quarter: 2012Q2

REPORT INFORMATION
  Report Type: 
  Country: None (occurrence: None)
  Receive Date: 20120406
  Receipt Date: 20120402
  Transmission Date: 20120825
  Serious: Yes (Other)
  Sender: FDA-Public Use
  Company Number: US-ASTRAZENECA-2011SE24210

PATIENT
  Age: 40 Year
  Sex: Male
  Weight: 72.6 kg

DRUGS (10)
  1. SEROQUEL [Suspect]
     Indication: DEPRESSION
     Route: 048
     Dates: start: 20090101
  2. SEROQUEL [Suspect]
     Route: 048
     Dates: start: 20120101, end: 20120125
  3. SEROQUEL [Suspect]
     Route: 048
     Dates: start: 20120101, end: 20120125
  4. HYDROCODONE BITARTRATE [Concomitant]
     Indication: MULTIPLE FRACTURES
     Dosage: 5/500, 2 TWO TABS TWO TIMES A DAY
     Route: 048
  5. TIZANIDINE HCL [Concomitant]
     Indication: MUSCLE RELAXANT THERAPY
     Route: 048
  6. SEROQUEL [Suspect]
     Route: 048
  7. SEROQUEL [Suspect]
     Indication: SLEEP DISORDER THERAPY
     Route: 048
     Dates: start: 20090101
  8. PROTONIX [Concomitant]
     Indication: GASTRIC DISORDER
  9. SEROQUEL [Suspect]
     Route: 048
  10. KEPPRA [Concomitant]
     Indication: CONVULSION
     Route: 048

REACTIONS (5)
  - DRUG INEFFECTIVE [None]
  - OFF LABEL USE [None]
  - HEAD INJURY [None]
  - CONVULSION [None]
  - ROTATOR CUFF SYNDROME [None]
